FAERS Safety Report 10517211 (Version 2)
Quarter: 2014Q4

REPORT INFORMATION
  Report Type: Spontaneous
  Country: FR (occurrence: GB)
  Receive Date: 20141014
  Receipt Date: 20141014
  Transmission Date: 20150528
  Serious: Yes (Other)
  Sender: FDA-Public Use
  Company Number: FR-MYLANLABS-2006S1011650

PATIENT

DRUGS (11)
  1. MERCAPTAMINE [Suspect]
     Active Substance: CYSTEAMINE
     Dosage: 100 MG, QD
     Route: 048
  2. CALCIUM CARBONATE. [Concomitant]
     Active Substance: CALCIUM CARBONATE
     Dosage: UNK
  3. FOLIC ACID. [Concomitant]
     Active Substance: FOLIC ACID
     Dosage: UNK
     Dates: start: 20020121
  4. ERYTHROPOIETIN [Concomitant]
     Active Substance: ERYTHROPOIETIN
     Dosage: UNK
  5. MERCAPTAMINE [Suspect]
     Active Substance: CYSTEAMINE
     Dosage: 1000 MG, QD
     Route: 048
     Dates: start: 20061023, end: 20061122
  6. MERCAPTAMINE [Suspect]
     Active Substance: CYSTEAMINE
     Indication: CYSTINOSIS
     Dosage: 200 MG, QD
     Route: 048
     Dates: start: 20060921
  7. MERCAPTAMINE [Suspect]
     Active Substance: CYSTEAMINE
     Dosage: 150 MG, QD
     Route: 048
  8. MERCAPTAMINE [Suspect]
     Active Substance: CYSTEAMINE
     Dosage: 100 MG, QD
     Route: 048
  9. POTASSIUM CHLORIDE. [Concomitant]
     Active Substance: POTASSIUM CHLORIDE
     Dosage: UNK
  10. FERROUS SULFATE [Concomitant]
     Active Substance: FERROUS SULFATE\FERROUS SULFATE, DRIED
     Dosage: UNK
     Dates: start: 20060904
  11. ALFACALCIDOL [Concomitant]
     Active Substance: ALFACALCIDOL
     Dosage: UNK
     Dates: start: 20060904

REACTIONS (5)
  - Lethargy [Recovered/Resolved]
  - Abdominal pain [Recovered/Resolved]
  - Renal failure [Not Recovered/Not Resolved]
  - Blood creatinine increased [Recovered/Resolved]
  - Vomiting [Recovered/Resolved]

NARRATIVE: CASE EVENT DATE: 20060921
